FAERS Safety Report 10583201 (Version 1)
Quarter: 2014Q4

REPORT INFORMATION
  Report Type: Spontaneous
  Country: GB (occurrence: GB)
  Receive Date: 20141114
  Receipt Date: 20141114
  Transmission Date: 20150529
  Serious: Yes (Hospitalization)
  Sender: FDA-Public Use
  Company Number: GB-CIPLA LTD.-2014GB01764

PATIENT
  Age: 29 Year
  Sex: Male

DRUGS (2)
  1. LAMOTRIGINE. [Suspect]
     Active Substance: LAMOTRIGINE
     Dosage: 32 G, ONCE
  2. PREGABALIN. [Suspect]
     Active Substance: PREGABALIN
     Dosage: 11.5 G, ONCE

REACTIONS (5)
  - Intentional overdose [Unknown]
  - Tonic clonic movements [Recovered/Resolved]
  - Aspiration [Unknown]
  - Urinary retention [Recovering/Resolving]
  - Acute respiratory distress syndrome [Unknown]
